FAERS Safety Report 9550363 (Version 1)
Quarter: 2013Q3

REPORT INFORMATION
  Report Type: Spontaneous
  Country: US (occurrence: US)
  Receive Date: 20130924
  Receipt Date: 20130924
  Transmission Date: 20140515
  Serious: No
  Sender: FDA-Public Use
  Company Number: US-SANOFI-AVENTIS-2013SA087790

PATIENT
  Age: 65 Year
  Sex: Female

DRUGS (7)
  1. AUBAGIO [Suspect]
     Indication: MULTIPLE SCLEROSIS
     Route: 048
     Dates: start: 201305
  2. FIBERCON [Concomitant]
  3. CENTRUM [Concomitant]
  4. XANAX [Concomitant]
  5. NEXIUM [Concomitant]
  6. PANCREASE [Concomitant]
  7. DETROL [Concomitant]

REACTIONS (3)
  - Urinary incontinence [Unknown]
  - Fatigue [Unknown]
  - Pain [Unknown]
